FAERS Safety Report 6318093-3 (Version None)
Quarter: 2009Q3

REPORT INFORMATION
  Report Type: 
  Country: None (occurrence: None)
  Receive Date: 20090821
  Receipt Date: 20090817
  Transmission Date: 20100115
  Serious: Yes (Other)
  Sender: FDA-Public Use
  Company Number: US-BAYER-200913143BCC

PATIENT
  Age: 27 Year
  Sex: Female
  Weight: 59 kg

DRUGS (3)
  1. FLINTSTONES COMPLETE [Suspect]
     Indication: VITAMIN SUPPLEMENTATION
     Dosage: TOTAL DAILY DOSE: 2 DF
     Route: 048
  2. ASPIRIN [Suspect]
     Indication: BLOOD DISORDER
     Route: 048
     Dates: end: 20090628
  3. INSULIN PUMP [Concomitant]
     Indication: DRUG USE FOR UNKNOWN INDICATION
     Route: 065

REACTIONS (1)
  - PREMATURE LABOUR [None]
